FAERS Safety Report 14274340 (Version 1)
Quarter: 2017Q4

REPORT INFORMATION
  Report Type: Spontaneous
  Country: US (occurrence: US)
  Receive Date: 20171212
  Receipt Date: 20171212
  Transmission Date: 20180321
  Serious: Yes (Disabling)
  Sender: FDA-Public Use
  Company Number: None

PATIENT
  Age: 73 Year
  Sex: Male
  Weight: 76.05 kg

DRUGS (14)
  1. TAMSULOSIN [Suspect]
     Active Substance: TAMSULOSIN
     Indication: ATRIAL FIBRILLATION
     Dosage: ?          QUANTITY:90 CAPSULE(S);?
     Route: 048
     Dates: start: 20171011, end: 20171210
  2. FOLIC ACID. [Concomitant]
     Active Substance: FOLIC ACID
  3. ARMOUR THYROID [Concomitant]
     Active Substance: THYROID, PORCINE
  4. MULTI-VITAMIN [Concomitant]
     Active Substance: .ALPHA.-TOCOPHEROL ACETATE, DL-\ASCORBIC ACID\CYANOCOBALAMIN\FLUORIDE ION\FOLIC ACID\NIACIN\PYRIDOXINE\RIBOFLAVIN\THIAMINE\VITAMIN A\VITAMIN D
  5. COENZYME Q10 [Concomitant]
     Active Substance: UBIDECARENONE
  6. VITAMIN D [Concomitant]
     Active Substance: CHOLECALCIFEROL
  7. FISH OIL [Concomitant]
     Active Substance: FISH OIL
  8. VITAMIN E (MIXED TOCOPHEROLS) [Concomitant]
  9. FEVERFEW [Concomitant]
     Active Substance: FEVERFEW
  10. MINERALS [Concomitant]
     Active Substance: MINERALS
  11. ROPINIROLE HCL [Concomitant]
     Active Substance: ROPINIROLE HYDROCHLORIDE
  12. TAMSULOSIN HCL [Concomitant]
     Active Substance: TAMSULOSIN
  13. VITAMIN C [Concomitant]
     Active Substance: ASCORBIC ACID
  14. MELATONIN [Concomitant]
     Active Substance: MELATONIN

REACTIONS (2)
  - Drug dose omission [None]
  - Blood pressure fluctuation [None]

NARRATIVE: CASE EVENT DATE: 20171211
